FAERS Safety Report 7480482-1 (Version None)
Quarter: 2011Q2

REPORT INFORMATION
  Report Type: 
  Country: None (occurrence: None)
  Receive Date: 20110505
  Receipt Date: 20110426
  Transmission Date: 20111010
  Serious: Yes (Other)
  Sender: FDA-Public Use
  Company Number: 2008-04391

PATIENT
  Age: 57 Year
  Sex: Female

DRUGS (3)
  1. THALIDOMIDE [Suspect]
     Indication: MULTIPLE MYELOMA
     Dosage: 100 MG,
  2. VELCADE [Suspect]
     Indication: MULTIPLE MYELOMA
     Dosage: 2 MG/M2,
  3. PREDNISONE [Suspect]
     Indication: MULTIPLE MYELOMA
     Dosage: 40 MG,

REACTIONS (8)
  - OVERDOSE [None]
  - THROMBOTIC THROMBOCYTOPENIC PURPURA [None]
  - SYNCOPE [None]
  - FATIGUE [None]
  - STEM CELL TRANSPLANT [None]
  - HAEMOGLOBIN DECREASED [None]
  - BLOOD LACTATE DEHYDROGENASE INCREASED [None]
  - PALLOR [None]
